FAERS Safety Report 19529586 (Version 3)
Quarter: 2022Q1

REPORT INFORMATION
  Report Type: Report from Study
  Country: CA (occurrence: CA)
  Receive Date: 20210713
  Receipt Date: 20220118
  Transmission Date: 20220424
  Serious: Yes (Other)
  Sender: FDA-Public Use
  Company Number: CA-HLS-202107598

PATIENT
  Age: 32 Year
  Sex: Female
  Weight: 125 kg

DRUGS (6)
  1. CLOZARIL [Suspect]
     Active Substance: CLOZAPINE
     Indication: Schizophrenia
     Dosage: 25 MG AT BED TIME
     Route: 048
     Dates: start: 20210602
  2. CLONAZEPAM [Concomitant]
     Active Substance: CLONAZEPAM
     Indication: Product used for unknown indication
     Dosage: TAKE 2 TABLET (=1 MG) BY MOUTH AT BEDTIME
     Route: 048
  3. CLONAZEPAM [Concomitant]
     Active Substance: CLONAZEPAM
     Indication: Product used for unknown indication
     Dosage: TAKE 2 TABLETS (=1 MG) BY MOUTH AT BEDTIME
     Route: 048
  4. ZOPICLONE [Concomitant]
     Active Substance: ZOPICLONE
     Indication: Product used for unknown indication
     Dosage: TAKE 2 TABLETS (=10MG) BY MOUTH AT BEDTIME
     Route: 048
  5. ARIPIPRAZOLE [Concomitant]
     Active Substance: ARIPIPRAZOLE
     Indication: Product used for unknown indication
     Dosage: TKE ONE TABLET BY MOUTH IN EACH MORNING AT 8:00 AM
     Route: 048
  6. OLANZAPINE [Concomitant]
     Active Substance: OLANZAPINE
     Indication: Product used for unknown indication
     Dosage: EVERY EVENING
     Route: 048

REACTIONS (6)
  - Obesity [Unknown]
  - Neutropenia [Unknown]
  - Hallucination, auditory [Unknown]
  - Left ventricular dysfunction [Unknown]
  - Tachycardia [Unknown]
  - White blood cell count decreased [Unknown]

NARRATIVE: CASE EVENT DATE: 20220106
